FAERS Safety Report 8613772-7 (Version None)
Quarter: 2012Q3

REPORT INFORMATION
  Report Type: 
  Country: None (occurrence: None)
  Receive Date: 20120823
  Receipt Date: 20120814
  Transmission Date: 20120928
  Serious: Yes (Hospitalization)
  Sender: FDA-Public Use
  Company Number: US-BIOGENIDEC-2012BI032148

PATIENT
  Sex: Male

DRUGS (2)
  1. TYSABRI [Suspect]
     Indication: MULTIPLE SCLEROSIS
     Route: 042
     Dates: start: 20100608, end: 20110324
  2. TYSABRI [Suspect]
     Route: 042
     Dates: start: 20120313, end: 20120410

REACTIONS (2)
  - PNEUMONIA [None]
  - ASTHENIA [None]
